FAERS Safety Report 21035565 (Version 1)
Quarter: 2022Q3

REPORT INFORMATION
  Report Type: Spontaneous
  Country: ES (occurrence: ES)
  Receive Date: 20220701
  Receipt Date: 20220701
  Transmission Date: 20221026
  Serious: Yes (Hospitalization, Other)
  Sender: FDA-Public Use
  Company Number: None

PATIENT
  Age: 71 Year
  Sex: Female

DRUGS (4)
  1. DOXORUBICIN [Interacting]
     Active Substance: DOXORUBICIN
     Indication: Richter^s syndrome
     Dosage: 42.3ML/H, IV NOS
     Route: 042
     Dates: start: 20220329
  2. ETOPOSIDE [Interacting]
     Active Substance: ETOPOSIDE
     Indication: Richter^s syndrome
     Dosage: 42.3ML/H, IV NOS
     Route: 042
     Dates: start: 20220329
  3. RITUXIMAB [Interacting]
     Active Substance: RITUXIMAB
     Indication: Richter^s syndrome
     Dosage: 375MG/M2, IV NOS
     Route: 042
     Dates: start: 20220329
  4. VINCRISTINE [Interacting]
     Active Substance: VINCRISTINE
     Indication: Richter^s syndrome
     Dosage: 42.3ML/H, IV NOS
     Route: 042
     Dates: start: 20220329

REACTIONS (1)
  - Pancytopenia [Recovered/Resolved]

NARRATIVE: CASE EVENT DATE: 20220615
